FAERS Safety Report 5249703-X (Version None)
Quarter: 2007Q1

REPORT INFORMATION
  Report Type: 
  Country: None (occurrence: None)
  Receive Date: 20070228
  Receipt Date: 20060914
  Transmission Date: 20070707
  Serious: No
  Sender: FDA-Public Use
  Company Number: US-GLAXOSMITHKLINE-A0620180A

PATIENT
  Age: 77 Year
  Sex: Female

DRUGS (6)
  1. IMITREX [Suspect]
     Indication: MIGRAINE
     Dosage: 6MG AS REQUIRED
     Route: 058
     Dates: start: 19960101
  2. IMITREX [Suspect]
     Dosage: 50MG UNKNOWN
     Route: 048
  3. LEXAPRO [Concomitant]
  4. PROTONIX [Concomitant]
  5. MICARDIS [Concomitant]
  6. ARIMIDEX [Concomitant]

REACTIONS (3)
  - DRUG ADMINISTRATION ERROR [None]
  - DRUG INEFFECTIVE [None]
  - EXPIRED DRUG ADMINISTERED [None]
